FAERS Safety Report 23710808 (Version 2)
Quarter: 2024Q2

REPORT INFORMATION
  Report Type: Spontaneous
  Country: US (occurrence: US)
  Receive Date: 20240405
  Receipt Date: 20240419
  Transmission Date: 20240715
  Serious: Yes (Death, Hospitalization, Other)
  Sender: FDA-Public Use
  Company Number: US-GILEAD-2024-0667983

PATIENT
  Age: 71 Year
  Sex: Male
  Weight: 103.4 kg

DRUGS (2)
  1. TRODELVY [Suspect]
     Active Substance: SACITUZUMAB GOVITECAN-HZIY
     Indication: Bladder cancer
     Dosage: 1030 UNK
     Route: 042
     Dates: start: 20231011, end: 20231011
  2. TRODELVY [Suspect]
     Active Substance: SACITUZUMAB GOVITECAN-HZIY
     Dosage: 1030 UNK
     Route: 042
     Dates: start: 20231018, end: 20231018

REACTIONS (5)
  - Cardiac arrest [Fatal]
  - Syncope [Unknown]
  - Hypovolaemia [Unknown]
  - Diarrhoea [Unknown]
  - Neutropenia [Unknown]

NARRATIVE: CASE EVENT DATE: 20231020
